FAERS Safety Report 5988295-4 (Version None)
Quarter: 2008Q4

REPORT INFORMATION
  Report Type: 
  Country: None (occurrence: None)
  Receive Date: 20081204
  Receipt Date: 20081121
  Transmission Date: 20090506
  Serious: Yes (Other)
  Sender: FDA-Public Use
  Company Number: CIP08002479

PATIENT
  Sex: Female

DRUGS (2)
  1. ACTONEL [Suspect]
     Dosage: UNKNOWN, ORAL
     Route: 048
  2. BONIVA [Suspect]
     Dosage: UNKNOWN, ORAL
     Route: 048

REACTIONS (2)
  - LIP AND/OR ORAL CAVITY CANCER [None]
  - STOMATITIS [None]
